FAERS Safety Report 9228032 (Version 3)
Quarter: 2013Q4

REPORT INFORMATION
  Report Type: Spontaneous
  Country: US (occurrence: None)
  Receive Date: 20121016
  Receipt Date: 20131011
  Transmission Date: 20140711
  Serious: Yes (Other)
  Sender: FDA-Public Use
  Company Number: 2012032560

PATIENT
  Age: 69 Year
  Sex: Male

DRUGS (40)
  1. PRIVIGEN [Suspect]
     Indication: IMMUNODEFICIENCY COMMON VARIABLE
     Dosage: 40 G 1X/MONTH, 20 GM VIALS, INTRAVENOUS (NOT OTHERWISE SPECIFIED)?
     Route: 042
     Dates: start: 20120601, end: 20120601
  2. AMOXICILLIN ( AMOXICILLIN) [Concomitant]
  3. AUGMENTIN ( AUGMENTIN) [Concomitant]
  4. PLATELET AGGREGATION INHIBITORS (PLATELET AGGREGATION INHIBITORS) [Concomitant]
  5. CENTRUM ( CENTRUM) [Concomitant]
  6. LASIX ( FUROSEMIDE) [Concomitant]
  7. LIPITOR (ATORVASTATIN CALCIUM) [Concomitant]
  8. NITROSTAT (GLYCERYL TRINITRATE) [Concomitant]
  9. TRICOR (FENOFIBRATE) [Concomitant]
  10. AMIODARONE HYDROCHLORIDE (AMIODARONE HYDROCHLORIDE) [Concomitant]
  11. ASPIRIN /00002701/ (ACETYLSALICYLIC ACID) [Concomitant]
  12. LISINOPRIL (LISINOPRIL) [Concomitant]
  13. GLIPIZIDE (GLIPIZIDE) [Concomitant]
  14. WELLBUTRIN /00700502/ [BUPROPION HYDROCHLORIDE) [Concomitant]
  15. PRILOSEC (OMEPRAZOLE) [Concomitant]
  16. METOPROLOL TARTRATE (METOPROLOL TARTRATE) [Concomitant]
  17. ZETIA (EZETIMIBE) [Concomitant]
  18. MST CONTINUS CR (MORPHINE SULFATE) [Concomitant]
  19. COFQ10 (UBIDECARENONE) [Concomitant]
  20. FOLIC ACID (FOLIC ACID) [Concomitant]
  21. NORCO (VICODIN) [Concomitant]
  22. IRON (IRON) [Concomitant]
  23. ORAL BLOOD GLUCOSE LOWERING DRUGS (ORAL BLOOD GLUCOSE LOWERING DRUGS) [Concomitant]
  24. OXYCONTIN ( OXYCODONE HYDROCHLORIDE) [Concomitant]
  25. DIPHENHYDRAMINE (DIPHENHYDRAMINE) [Concomitant]
  26. SODIUM CHLORIDE (SODIUM CHLORIDE) [Concomitant]
  27. EPIPEN JR (EPINEPHRINE HYDROCHLORIDE) [Concomitant]
  28. DOXYCYCLINE HYCLATE (DOXYCYCLINE HYCLATE) [Concomitant]
  29. CYMBALTA (DULOXETINE HYDORCHLORIDE) [Concomitant]
  30. ECOTRIN (ACETYLSALICYLIC ACID) [Concomitant]
  31. HYDRALAZINE (HYDRALAZINE) [Concomitant]
  32. ESZOPICLONE (ESZOPICLONE) [Concomitant]
  33. ALBUTEROL /00139501/ (SALBUTAMOL) [Concomitant]
  34. PLAVIX /01220701/ (CLOPIDOGREL) [Concomitant]
  35. TESTOSTERONE (TESTOSTERONE) [Concomitant]
  36. VITAMIN D (ERGOCALCIFREROL) [Concomitant]
  37. RENA-VITE (RENA-VITE) [Concomitant]
  38. FISH OIL (FISH OIL) [Concomitant]
  39. PROBIOTICA (LACTOBACILLUS REUTER) [Concomitant]
  40. OXYGEN (OXYGEN) [Concomitant]

REACTIONS (3)
  - Oedema [None]
  - Cellulitis [None]
  - Skin ulcer [None]
